FAERS Safety Report 13908641 (Version 1)
Quarter: 2017Q3

REPORT INFORMATION
  Report Type: Spontaneous
  Country: US (occurrence: US)
  Receive Date: 20170827
  Receipt Date: 20170827
  Transmission Date: 20171127
  Serious: No
  Sender: FDA-Public Use
  Company Number: GXBR2017US002251

PATIENT
  Sex: Male
  Weight: 68.27 kg

DRUGS (2)
  1. HYDROXYZINE PAMOATE CAPSULES USP [Suspect]
     Active Substance: HYDROXYZINE PAMOATE
     Indication: SLEEP DISORDER
  2. HYDROXYZINE PAMOATE CAPSULES USP [Suspect]
     Active Substance: HYDROXYZINE PAMOATE
     Indication: NASAL CONGESTION
     Dosage: TAKES ONE OR TWO CAPSULES, QID
     Route: 048
     Dates: start: 201701

REACTIONS (2)
  - Pain [Not Recovered/Not Resolved]
  - Cyst [Not Recovered/Not Resolved]
